FAERS Safety Report 15787002 (Version 1)
Quarter: 2019Q1

REPORT INFORMATION
  Report Type: Spontaneous
  Country: FI (occurrence: FI)
  Receive Date: 20190103
  Receipt Date: 20190103
  Transmission Date: 20190417
  Serious: Yes (Other)
  Sender: FDA-Public Use
  Company Number: FI-TEVA-2018-FI-993864

PATIENT
  Age: 31 Year
  Sex: Female

DRUGS (1)
  1. ISOTRETINOIN RATIOPHARM [Suspect]
     Active Substance: ISOTRETINOIN
     Indication: PRODUCT USED FOR UNKNOWN INDICATION
     Dosage: 40 MILLIGRAM DAILY;
     Route: 048
     Dates: start: 201708, end: 201712

REACTIONS (2)
  - Mobility decreased [Not Recovered/Not Resolved]
  - Arthritis reactive [Not Recovered/Not Resolved]

NARRATIVE: CASE EVENT DATE: 2017
